FAERS Safety Report 12296172 (Version 1)
Quarter: 2016Q2

REPORT INFORMATION
  Report Type: Spontaneous
  Country: DE (occurrence: DE)
  Receive Date: 20160422
  Receipt Date: 20160422
  Transmission Date: 20160815
  Serious: Yes (Other)
  Sender: FDA-Public Use
  Company Number: PHHY2016DE051825

PATIENT
  Age: 37 Year
  Sex: Male

DRUGS (1)
  1. EXJADE [Suspect]
     Active Substance: DEFERASIROX
     Indication: PRODUCT USED FOR UNKNOWN INDICATION
     Dosage: 500 MG, QD
     Route: 065
     Dates: start: 20160218

REACTIONS (4)
  - Paroxysmal nocturnal haemoglobinuria [Unknown]
  - Haemolysis [Unknown]
  - Diverticulitis [Not Recovered/Not Resolved]
  - Perforation [Not Recovered/Not Resolved]

NARRATIVE: CASE EVENT DATE: 20160314
